FAERS Safety Report 14636516 (Version 1)
Quarter: 2018Q1

REPORT INFORMATION
  Report Type: Spontaneous
  Country: CN (occurrence: CN)
  Receive Date: 20180314
  Receipt Date: 20180314
  Transmission Date: 20180509
  Serious: Yes (Other)
  Sender: FDA-Public Use
  Company Number: CN-ABBVIE-18P-035-2286443-00

PATIENT
  Age: 52 Year
  Sex: Male

DRUGS (2)
  1. MAGNESIUM VALPROATE [Suspect]
     Active Substance: VALPROATE MAGNESIUM
     Indication: AFFECTIVE DISORDER
     Dosage: 0.75 GRAM(S);TWICE A DAY
     Route: 048
     Dates: start: 20171102, end: 20171105
  2. DEPAKINE CHRONO [Suspect]
     Active Substance: VALPROATE SODIUM
     Indication: AFFECTIVE DISORDER
     Dosage: 0.5 GRAM(S);TWICE A DAY
     Route: 048
     Dates: start: 20171028, end: 20171031

REACTIONS (3)
  - Depressed level of consciousness [Recovered/Resolved]
  - Bradykinesia [Recovered/Resolved]
  - Somnolence [Recovered/Resolved]

NARRATIVE: CASE EVENT DATE: 20171105
